FAERS Safety Report 6793759-X (Version None)
Quarter: 2010Q2

REPORT INFORMATION
  Report Type: 
  Country: None (occurrence: None)
  Receive Date: 20100624
  Receipt Date: 20090204
  Transmission Date: 20101027
  Serious: No
  Sender: FDA-Public Use
  Company Number: US-PFIZER INC-2009156045

PATIENT
  Sex: Female
  Weight: 73.469 kg

DRUGS (5)
  1. XALATAN [Suspect]
     Indication: GLAUCOMA
     Dosage: UNK
  2. COMBIGAN [Concomitant]
     Dosage: UNK
  3. AZOPT [Concomitant]
     Dosage: UNK
  4. ANTIHYPERTENSIVES [Concomitant]
     Dosage: UNK
  5. OPHTHALMOLOGICALS [Concomitant]
     Dosage: UNK

REACTIONS (2)
  - VISION BLURRED [None]
  - WEIGHT INCREASED [None]
